FAERS Safety Report 10495279 (Version 1)
Quarter: 2014Q4

REPORT INFORMATION
  Report Type: Spontaneous
  Country: BR (occurrence: BR)
  Receive Date: 20141003
  Receipt Date: 20141003
  Transmission Date: 20150528
  Serious: Yes (Hospitalization)
  Sender: FDA-Public Use
  Company Number: BR-PFIZER INC-2014270427

PATIENT
  Age: 64 Year
  Sex: Female
  Weight: 55 kg

DRUGS (1)
  1. AROMASIN [Suspect]
     Active Substance: EXEMESTANE
     Indication: BREAST CANCER FEMALE
     Dosage: 1 TABLET (25 MG), 1X/DAY
     Route: 048
     Dates: start: 20140210, end: 201407

REACTIONS (4)
  - Respiratory failure [Unknown]
  - Speech disorder [Not Recovered/Not Resolved]
  - Pulmonary oedema [Unknown]
  - Dyspnoea [Unknown]
